FAERS Safety Report 4281332-7 (Version None)
Quarter: 2004Q1

REPORT INFORMATION
  Report Type: 
  Country: None (occurrence: None)
  Receive Date: 20040108
  Receipt Date: 20030822
  Transmission Date: 20041129
  Serious: Yes (Other)
  Sender: FDA-Public Use
  Company Number: HQWYE305025AUG03

PATIENT
  Age: 68 Year
  Sex: Female

DRUGS (4)
  1. PREMPRO [Suspect]
     Indication: OSTEOPOROSIS
     Dosage: ORAL
     Route: 048
     Dates: start: 19890101
  2. CALCIUM (CALCIUM) [Concomitant]
  3. ATENOLOL [Concomitant]
  4. LIPITOR [Concomitant]

REACTIONS (1)
  - BREAST CANCER FEMALE [None]
